FAERS Safety Report 4716657-1 (Version None)
Quarter: 2005Q3

REPORT INFORMATION
  Report Type: 
  Country: None (occurrence: None)
  Receive Date: 20050714
  Receipt Date: 20050708
  Transmission Date: 20060218
  Serious: Yes (Hospitalization)
  Sender: FDA-Public Use
  Company Number: TIF2005A00008

PATIENT
  Age: 34 Year
  Sex: Female

DRUGS (4)
  1. LIMPIDEX     (LANSOPRAZOLE) [Suspect]
     Indication: HELICOBACTER INFECTION
     Dosage: 30 MG (30 MG, 1 IN 1 D) ORAL
     Route: 048
     Dates: start: 20050202, end: 20050206
  2. VELAMOX         (AMOXICILLIN) [Suspect]
     Indication: HELICOBACTER INFECTION
     Dosage: 2 G (1 G, 2  IN 1 D) ORAL
     Route: 048
     Dates: start: 20050202, end: 20050206
  3. VECLAM           (CLARITHROMYCIN) [Concomitant]
  4. ASPARTAME               (ASPARTAME) [Concomitant]

REACTIONS (6)
  - FLUID RETENTION [None]
  - HAEMODIALYSIS [None]
  - IMMUNE SYSTEM DISORDER [None]
  - NEPHRITIS ALLERGIC [None]
  - NEPHRITIS INTERSTITIAL [None]
  - RENAL FAILURE ACUTE [None]
